FAERS Safety Report 7961353-0 (Version None)
Quarter: 2011Q4

REPORT INFORMATION
  Report Type: 
  Country: None (occurrence: None)
  Receive Date: 20111202
  Receipt Date: 20110201
  Transmission Date: 20120403
  Serious: Yes (Other)
  Sender: FDA-Public Use
  Company Number: GGEL20111101454

PATIENT
  Sex: Male

DRUGS (1)
  1. ZONISAMIDE [Suspect]
     Indication: CONVULSION
     Dosage: 300 MILLIGRAM, 1 D, 500 MILLIGRAM, 1 D,

REACTIONS (2)
  - PRODUCT MEASURED POTENCY ISSUE [None]
  - CONVULSION [None]
